FAERS Safety Report 6735974-7 (Version None)
Quarter: 2010Q2

REPORT INFORMATION
  Report Type: 
  Country: None (occurrence: None)
  Receive Date: 20100521
  Receipt Date: 20100512
  Transmission Date: 20101027
  Serious: Yes (Other)
  Sender: FDA-Public Use
  Company Number: D0066933A

PATIENT
  Sex: Female

DRUGS (4)
  1. REQUIP [Suspect]
     Indication: PARKINSON'S DISEASE
     Dosage: 24MG PER DAY
     Route: 048
     Dates: start: 20100301, end: 20100301
  2. NACOM [Concomitant]
     Route: 065
  3. GABAPENTIN [Concomitant]
     Route: 065
  4. SIFROL [Concomitant]
     Route: 065

REACTIONS (2)
  - POLYNEUROPATHY [None]
  - SKIN DISCOLOURATION [None]
